FAERS Safety Report 9375262 (Version 2)
Quarter: 2013Q3

REPORT INFORMATION
  Report Type: Report from Study
  Country: US (occurrence: US)
  Receive Date: 20130628
  Receipt Date: 20130710
  Transmission Date: 20140515
  Serious: Yes (Hospitalization)
  Sender: FDA-Public Use
  Company Number: US-ABBOTT-13P-163-1108078-00

PATIENT
  Age: 20 Year
  Sex: Male

DRUGS (2)
  1. HUMIRA [Suspect]
     Indication: PSORIASIS
     Dosage: 2 IN 1 DAY (80 MG)
     Dates: start: 20130121, end: 20130121
  2. HUMIRA [Suspect]
     Dates: start: 20130128, end: 20130529

REACTIONS (2)
  - Lymphadenopathy [Recovering/Resolving]
  - Myositis [Recovered/Resolved]
